FAERS Safety Report 5344230-3 (Version None)
Quarter: 2007Q2

REPORT INFORMATION
  Report Type: 
  Country: None (occurrence: None)
  Receive Date: 20070531
  Receipt Date: 20070531
  Transmission Date: 20071010
  Serious: Yes (Other)
  Sender: FDA-Public Use
  Company Number: None

PATIENT
  Sex: Female
  Weight: 78.2 kg

DRUGS (9)
  1. SUTENT [Suspect]
     Indication: GLIOBLASTOMA
     Dosage: 50 MG DAILY PO
     Route: 048
     Dates: start: 20070509, end: 20070524
  2. DEXAMETHASONE 0.5MG TAB [Concomitant]
  3. ALTACE [Concomitant]
  4. TOPROL-XL [Concomitant]
  5. INSULIN [Concomitant]
  6. CRESTOR [Concomitant]
  7. TOLAZAMIDE [Concomitant]
  8. PREVACID [Concomitant]
  9. REQUIP [Concomitant]

REACTIONS (3)
  - ALANINE AMINOTRANSFERASE ABNORMAL [None]
  - ASPARTATE AMINOTRANSFERASE ABNORMAL [None]
  - PLATELET COUNT ABNORMAL [None]
